FAERS Safety Report 7366603-X (Version None)
Quarter: 2011Q1

REPORT INFORMATION
  Report Type: 
  Country: None (occurrence: None)
  Receive Date: 20110322
  Receipt Date: 20110315
  Transmission Date: 20110831
  Serious: Yes (Other)
  Sender: FDA-Public Use
  Company Number: US-B.I. PHARMACEUTICALS,INC./RIDGEFIELD-2011-BP-08360BP

PATIENT
  Sex: Male

DRUGS (1)
  1. PRADAXA [Suspect]
     Indication: ATRIAL FIBRILLATION
     Dosage: 300 MG
     Route: 048
     Dates: start: 20110304

REACTIONS (8)
  - CONTUSION [None]
  - DYSURIA [None]
  - ASTHENIA [None]
  - DYSPNOEA [None]
  - SWOLLEN TONGUE [None]
  - DIZZINESS [None]
  - WHEEZING [None]
  - SUDDEN ONSET OF SLEEP [None]
